FAERS Safety Report 10914676 (Version 2)
Quarter: 2015Q1

REPORT INFORMATION
  Report Type: Spontaneous
  Country: JP (occurrence: JP)
  Receive Date: 20150313
  Receipt Date: 20150326
  Transmission Date: 20150721
  Serious: Yes (Hospitalization)
  Sender: FDA-Public Use
  Company Number: JP-KERYX BIOPHARMA UK LTD-2015JP000832

PATIENT

DRUGS (7)
  1. YOUPATCH [Concomitant]
     Dosage: 2 DF, UNK
     Route: 003
  2. TANKARU [Concomitant]
     Indication: HYPERPHOSPHATAEMIA
     Dosage: 500 MG, BID
     Route: 048
  3. AMLODIN [Concomitant]
     Active Substance: AMLODIPINE BESYLATE
     Dosage: 2.5 MG, UNK
     Route: 048
  4. DAIKENCHUTO [Concomitant]
     Active Substance: HERBALS
     Dosage: 3 DF, TID
     Route: 048
  5. RIONA [Suspect]
     Active Substance: FERRIC CITRATE ANHYDROUS
     Indication: HYPERPHOSPHATAEMIA
     Dosage: 250 MG, TID
     Route: 048
     Dates: start: 20141222, end: 20150106
  6. ALFAROL [Concomitant]
     Active Substance: ALFACALCIDOL
     Dosage: 0.5 ?G, QD
     Route: 048
  7. LANSOPRAZOLE. [Concomitant]
     Active Substance: LANSOPRAZOLE
     Dosage: 15 MG, QD
     Route: 048

REACTIONS (1)
  - Ileus [Recovered/Resolved]

NARRATIVE: CASE EVENT DATE: 20150106
